FAERS Safety Report 5860088-8 (Version None)
Quarter: 2008Q3

REPORT INFORMATION
  Report Type: 
  Country: None (occurrence: None)
  Receive Date: 20080827
  Receipt Date: 20080819
  Transmission Date: 20090109
  Serious: Yes (Hospitalization)
  Sender: FDA-Public Use
  Company Number: US-AVENTIS-200817921GDDC

PATIENT
  Age: 68 Year
  Sex: Female

DRUGS (11)
  1. DOCETAXEL [Suspect]
     Indication: SQUAMOUS CELL CARCINOMA
     Route: 042
     Dates: start: 20080814, end: 20080814
  2. CISPLATIN [Suspect]
     Indication: SQUAMOUS CELL CARCINOMA
     Dosage: DOSE: UNK
     Dates: start: 20080814, end: 20080814
  3. FLUOROURACIL [Suspect]
     Indication: SQUAMOUS CELL CARCINOMA
     Dosage: DOSE: UNK
     Dates: start: 20080814
  4. ZOFRAN [Concomitant]
  5. OXYCONTIN [Concomitant]
  6. PHENERGAN HCL [Concomitant]
  7. ROXICET [Concomitant]
     Route: 048
  8. EMEND [Concomitant]
  9. POTASSIUM CHLORIDE [Concomitant]
  10. PROZAC [Concomitant]
  11. DECADRON [Concomitant]

REACTIONS (2)
  - MENTAL STATUS CHANGES [None]
  - UNRESPONSIVE TO STIMULI [None]
